FAERS Safety Report 8466484-7 (Version None)
Quarter: 2012Q2

REPORT INFORMATION
  Report Type: 
  Country: None (occurrence: None)
  Receive Date: 20120620
  Receipt Date: 20120620
  Transmission Date: 20120825
  Serious: Yes (Other)
  Sender: FDA-Public Use
  Company Number: None

PATIENT
  Sex: Female

DRUGS (2)
  1. LEVOFLOXACIN [Suspect]
     Indication: GASTROINTESTINAL DISORDER
     Dosage: 500 MG ONCE A DAY PO
     Route: 048
     Dates: start: 20120616, end: 20120619
  2. METRONIDAZOLE [Suspect]
     Indication: GASTROINTESTINAL DISORDER
     Dosage: 500 MG EVERY 8 HOURS PO
     Route: 048
     Dates: start: 20120616, end: 20120619

REACTIONS (4)
  - DYSARTHRIA [None]
  - MUSCLE SPASMS [None]
  - HEADACHE [None]
  - ARTHRITIS [None]
